FAERS Safety Report 4983422-X (Version None)
Quarter: 2006Q2

REPORT INFORMATION
  Report Type: 
  Country: None (occurrence: None)
  Receive Date: 20060419
  Receipt Date: 20060406
  Transmission Date: 20061013
  Serious: Yes (Hospitalization)
  Sender: FDA-Public Use
  Company Number: RENA-11615

PATIENT
  Age: 49 Year
  Sex: Female

DRUGS (10)
  1. PHOSBLOCK  250 MG TABLETS [Suspect]
     Indication: HYPERPHOSPHATAEMIA
     Dosage: 2 G QD PO
     Route: 048
     Dates: start: 20051007, end: 20051109
  2. PHOSBLOCK 250 MG TABLETS [Suspect]
     Indication: HYPERPHOSPHATAEMIA
     Dosage: 2.25 G QD PO
     Route: 048
     Dates: start: 20051111, end: 20060108
  3. PRECIPITATED CALCIUM CARBONATE [Concomitant]
  4. CARVEDILOL [Concomitant]
  5. AMLODIPINE BESYLATE [Concomitant]
  6. SIMVASTATIN [Concomitant]
  7. FAMOTIGINE [Concomitant]
  8. DROXIDOPA [Concomitant]
  9. SENNA [Concomitant]
  10. EPOETIN BETA [Concomitant]

REACTIONS (2)
  - GASTRIC ULCER [None]
  - STRESS ULCER [None]
